FAERS Safety Report 16449928 (Version 1)
Quarter: 2019Q2

REPORT INFORMATION
  Report Type: Spontaneous
  Country: GB (occurrence: GB)
  Receive Date: 20190619
  Receipt Date: 20190619
  Transmission Date: 20190711
  Serious: Yes (Other)
  Sender: FDA-Public Use
  Company Number: GB-ACCORD-133453

PATIENT
  Age: 17 Year
  Sex: Female
  Weight: 65.77 kg

DRUGS (2)
  1. SERTRALINE [Suspect]
     Active Substance: SERTRALINE HYDROCHLORIDE
     Indication: ANXIETY
     Route: 048
     Dates: start: 20190426
  2. QUETIAPINE/QUETIAPINE FUMARATE [Concomitant]
     Dosage: IN THE EVENING

REACTIONS (5)
  - Decreased appetite [Unknown]
  - Hyperventilation [Unknown]
  - Panic reaction [Unknown]
  - Dizziness [Recovered/Resolved]
  - Anxiety [Recovering/Resolving]

NARRATIVE: CASE EVENT DATE: 20190427
